FAERS Safety Report 6053130-5 (Version None)
Quarter: 2009Q1

REPORT INFORMATION
  Report Type: 
  Country: None (occurrence: None)
  Receive Date: 20090127
  Receipt Date: 20090109
  Transmission Date: 20090719
  Serious: Yes (Other)
  Sender: FDA-Public Use
  Company Number: CH-BAYER-200910938GPV

PATIENT
  Age: 48 Year
  Sex: Male
  Weight: 66 kg

DRUGS (6)
  1. ADALAT CC [Suspect]
     Indication: ESSENTIAL HYPERTENSION
     Dosage: TOTAL DAILY DOSE: 20 MG  UNIT DOSE: 20 MG
     Route: 048
     Dates: start: 20021220, end: 20080308
  2. ADALAT CC [Suspect]
     Dosage: TOTAL DAILY DOSE: 20 MG  UNIT DOSE: 20 MG
     Route: 048
     Dates: start: 20080613, end: 20080701
  3. ASPIRIN [Suspect]
     Indication: ISCHAEMIC CARDIOMYOPATHY
     Route: 048
     Dates: start: 20080220, end: 20080415
  4. ASPIRIN [Suspect]
     Route: 048
     Dates: start: 20080613
  5. ATORVASTATIN CALCIUM [Suspect]
     Indication: ISCHAEMIC CARDIOMYOPATHY
     Route: 048
     Dates: start: 20080308, end: 20080415
  6. IOMEPROL [Suspect]
     Indication: DIAGNOSTIC PROCEDURE
     Route: 042
     Dates: start: 20080228, end: 20080228

REACTIONS (3)
  - CUTANEOUS VASCULITIS [None]
  - PSORIASIS [None]
  - RASH PRURITIC [None]
